FAERS Safety Report 17797457 (Version 1)
Quarter: 2020Q2

REPORT INFORMATION
  Report Type: Spontaneous
  Country: US (occurrence: US)
  Receive Date: 20200518
  Receipt Date: 20200518
  Transmission Date: 20200714
  Serious: No
  Sender: FDA-Public Use
  Company Number: US-SA-2020SA124599

PATIENT
  Age: 82 Year
  Sex: Male

DRUGS (1)
  1. TOUJEO [Suspect]
     Active Substance: INSULIN GLARGINE
     Indication: TYPE 2 DIABETES MELLITUS
     Dosage: 28 IU, AT NIGHT
     Route: 065
     Dates: start: 20200501

REACTIONS (7)
  - Mass [Unknown]
  - Blood pressure decreased [Unknown]
  - Feeling abnormal [Unknown]
  - Rash [Unknown]
  - Inflammation [Unknown]
  - Pruritus [Unknown]
  - Blood glucose increased [Unknown]
